FAERS Safety Report 8070642-3 (Version None)
Quarter: 2011Q4

REPORT INFORMATION
  Report Type: 
  Country: None (occurrence: None)
  Receive Date: 20111221
  Receipt Date: 20110922
  Transmission Date: 20120403
  Serious: Yes (Hospitalization)
  Sender: FDA-Public Use
  Company Number: PHEH2011US04963

PATIENT
  Age: 19 Year
  Sex: Male
  Weight: 71.2 kg

DRUGS (1)
  1. EXJADE [Suspect]
     Indication: SICKLE CELL ANAEMIA
     Dosage: 1750 MG, DAILY, ORAL
     Route: 048
     Dates: start: 20070212

REACTIONS (1)
  - SICKLE CELL ANAEMIA WITH CRISIS [None]
